FAERS Safety Report 8235660-0 (Version None)
Quarter: 2012Q1

REPORT INFORMATION
  Report Type: 
  Country: None (occurrence: None)
  Receive Date: 20120326
  Receipt Date: 20120323
  Transmission Date: 20120608
  Serious: Yes (Life-Threatening, Hospitalization, Disabling, Other)
  Sender: FDA-Public Use
  Company Number: JP-B.I. PHARMACEUTICALS,INC./RIDGEFIELD-2011-BP-24065NB

PATIENT
  Sex: Male
  Weight: 60.2 kg

DRUGS (4)
  1. PRADAXA [Suspect]
     Dosage: 300 MG
     Route: 048
     Dates: start: 20110608, end: 20110726
  2. SUNRYTHM [Concomitant]
     Dosage: 150 MG
     Route: 048
     Dates: start: 20100101
  3. DILTIAZEM HCL [Concomitant]
     Dosage: 200 MG
     Route: 048
     Dates: start: 20050101
  4. LEVOTHYROXINE SODIUM [Concomitant]
     Dosage: 75 MCG
     Route: 048
     Dates: start: 20030101

REACTIONS (6)
  - PYELONEPHRITIS [None]
  - URINARY RETENTION [None]
  - SEPTIC SHOCK [None]
  - DISSEMINATED INTRAVASCULAR COAGULATION [None]
  - MULTI-ORGAN FAILURE [None]
  - HAEMATURIA [None]
